FAERS Safety Report 16968990 (Version 2)
Quarter: 2020Q1

REPORT INFORMATION
  Report Type: Spontaneous
  Country: US (occurrence: US)
  Receive Date: 20191029
  Receipt Date: 20200316
  Transmission Date: 20200409
  Serious: No
  Sender: FDA-Public Use
  Company Number: US-TEVA-2019-US-1128799

PATIENT
  Sex: Male

DRUGS (1)
  1. TESTOSTERONE INJECTION [Suspect]
     Active Substance: TESTOSTERONE
     Route: 065

REACTIONS (2)
  - Swelling [Unknown]
  - Blister [Unknown]
